FAERS Safety Report 7903204-6 (Version None)
Quarter: 2011Q4

REPORT INFORMATION
  Report Type: 
  Country: None (occurrence: None)
  Receive Date: 20111107
  Receipt Date: 20111025
  Transmission Date: 20120403
  Serious: Yes (Other)
  Sender: FDA-Public Use
  Company Number: 1000025096

PATIENT
  Age: 64 Year
  Sex: Male

DRUGS (16)
  1. UNDEPRE (TRAZODONE HYDROCHLORIDE) [Concomitant]
  2. FLIVAS (NAFTOPIDIL) [Concomitant]
  3. SEROQUEL [Concomitant]
  4. GASCON (DIMETICONE) [Concomitant]
  5. PANTOSIN (PANTETHINE) [Concomitant]
  6. MEMANTINE HYDROCHLORIDE [Suspect]
     Indication: DEMENTIA ALZHEIMER'S TYPE
     Dosage: 20;10  MG (20 MG, 1 IN 1 D), ORAL
     Route: 048
     Dates: start: 20110808, end: 20111004
  7. MEMANTINE HYDROCHLORIDE [Suspect]
     Indication: DEMENTIA ALZHEIMER'S TYPE
     Dosage: 20;10  MG (20 MG, 1 IN 1 D), ORAL
     Route: 048
     Dates: start: 20111005, end: 20111010
  8. NELUROLEN (NITRAZEPAM) [Concomitant]
  9. MEMANTINE HYDROCHLORIDE [Suspect]
     Indication: DEMENTIA ALZHEIMER'S TYPE
     Dosage: 5;10;15 MG (5 MG, 1 IN 1 D), ORAL
     Route: 048
     Dates: start: 20110718, end: 20110724
  10. MEMANTINE HYDROCHLORIDE [Suspect]
     Indication: DEMENTIA ALZHEIMER'S TYPE
     Dosage: 5;10;15 MG (5 MG, 1 IN 1 D), ORAL
     Route: 048
     Dates: start: 20110801, end: 20110807
  11. MEMANTINE HYDROCHLORIDE [Suspect]
     Indication: DEMENTIA ALZHEIMER'S TYPE
     Dosage: 5;10;15 MG (5 MG, 1 IN 1 D), ORAL
     Route: 048
     Dates: start: 20110725, end: 20110731
  12. MERCAZOLE (THIAMAZOLE) [Concomitant]
  13. EVIPROSTAT (SODIUM TAUROCHOLATE, MANGANESE CHLORIDE, TRITICUM AESTIVUM [Concomitant]
  14. YOKUKAN-SAN (HERBAL EXTRACT NOS) [Concomitant]
  15. SELENICA-R (VALPROATE SODIUM) [Concomitant]
  16. RISPERIDONE [Concomitant]

REACTIONS (7)
  - PNEUMONIA [None]
  - PYELONEPHRITIS ACUTE [None]
  - HAEMOGLOBIN DECREASED [None]
  - ABASIA [None]
  - HAEMATOCRIT DECREASED [None]
  - ESCHERICHIA TEST POSITIVE [None]
  - PLEURAL EFFUSION [None]
